FAERS Safety Report 25237313 (Version 1)
Quarter: 2025Q2

REPORT INFORMATION
  Report Type: Report from Study
  Country: BR (occurrence: BR)
  Receive Date: 20250425
  Receipt Date: 20250425
  Transmission Date: 20250717
  Serious: Yes (Life-Threatening, Hospitalization, Other)
  Sender: ALEXION PHARMACEUTICALS
  Company Number: BR-AstraZeneca-CH-00854050A

PATIENT
  Age: 59 Year
  Weight: 78 kg

DRUGS (4)
  1. TEZEPELUMAB [Suspect]
     Active Substance: TEZEPELUMAB
     Indication: Asthma
     Route: 065
  2. TEZEPELUMAB [Suspect]
     Active Substance: TEZEPELUMAB
  3. CRESTOR [Concomitant]
     Active Substance: ROSUVASTATIN CALCIUM
     Dosage: 10 MILLIGRAM, QD
  4. SEROQUEL [Concomitant]
     Active Substance: QUETIAPINE FUMARATE
     Dosage: 100 MILLIGRAM, QD

REACTIONS (26)
  - Asthma [Unknown]
  - Psoriatic arthropathy [Unknown]
  - Rheumatoid arthritis [Unknown]
  - Dry mouth [Not Recovered/Not Resolved]
  - Throat irritation [Unknown]
  - Throat irritation [Unknown]
  - Swelling face [Recovering/Resolving]
  - Erythema [Recovering/Resolving]
  - Pruritus [Recovering/Resolving]
  - Parosmia [Not Recovered/Not Resolved]
  - Cough [Recovering/Resolving]
  - Productive cough [Recovering/Resolving]
  - Dyspnoea [Recovered/Resolved]
  - Sneezing [Recovering/Resolving]
  - Pulmonary calcification [Unknown]
  - Ill-defined disorder [Unknown]
  - Atrophy [Unknown]
  - Mobility decreased [Unknown]
  - Multiple allergies [Unknown]
  - Parathyroid disorder [Unknown]
  - Fatigue [Unknown]
  - Atelectasis [Unknown]
  - Neutrophilia [Unknown]
  - Thyroid disorder [Unknown]
  - Abdominal pain upper [Unknown]
  - Arteriosclerosis [Unknown]
